FAERS Safety Report 6328425-8 (Version None)
Quarter: 2009Q3

REPORT INFORMATION
  Report Type: 
  Country: None (occurrence: None)
  Receive Date: 20090825
  Receipt Date: 20090708
  Transmission Date: 20100115
  Serious: No
  Sender: FDA-Public Use
  Company Number: US-ABBOTT-09P-163-0584583-00

PATIENT
  Sex: Female
  Weight: 75.364 kg

DRUGS (3)
  1. SYNTHROID [Suspect]
     Indication: HYPOTHYROIDISM
     Route: 048
     Dates: start: 19950101
  2. UNKNOWN BLOOD PRESSURE MEDICATIONS [Suspect]
     Indication: HYPERTENSION
     Dates: start: 20090201
  3. AVAPRO [Concomitant]
     Indication: DRUG USE FOR UNKNOWN INDICATION

REACTIONS (4)
  - DIARRHOEA [None]
  - HYPERTENSION [None]
  - HYPOTENSION [None]
  - MUSCLE SPASMS [None]
